FAERS Safety Report 7426432-5 (Version None)
Quarter: 2011Q1

REPORT INFORMATION
  Report Type: 
  Country: None (occurrence: None)
  Receive Date: 20110302
  Receipt Date: 20101124
  Transmission Date: 20110831
  Serious: No
  Sender: FDA-Public Use
  Company Number: 022890

PATIENT
  Sex: Female
  Weight: 43.4 kg

DRUGS (13)
  1. DIAZEPAM [Concomitant]
  2. PREDNISONE [Concomitant]
  3. VITAMIN B COMPLEX /00003501/ [Concomitant]
  4. FOLIC ACID [Concomitant]
  5. BACTRIM [Concomitant]
  6. POTASSIUM GLUCONATE TAB [Concomitant]
  7. CIMZIA [Suspect]
     Indication: CROHN'S DISEASE
     Dosage: (400 MG 1X/2 WEEKS SUBCUTANEOUS)
     Route: 058
     Dates: start: 20101110
  8. MECLIZINE /00072801/ [Concomitant]
  9. ALPRAZOLAM [Concomitant]
  10. HYDROXYZINE [Concomitant]
  11. CITALOPRAM [Concomitant]
  12. TRIAZOLAM [Concomitant]
  13. ROPINIROLE [Concomitant]

REACTIONS (1)
  - NASOPHARYNGITIS [None]
